FAERS Safety Report 16367258 (Version 1)
Quarter: 2019Q2

REPORT INFORMATION
  Report Type: Spontaneous
  Country: FR (occurrence: FR)
  Receive Date: 20190529
  Receipt Date: 20190529
  Transmission Date: 20190711
  Serious: Yes (Other)
  Sender: FDA-Public Use
  Company Number: FR-MYLANLABS-2014M1005651

PATIENT
  Age: 58 Year
  Sex: Male
  Weight: 71 kg

DRUGS (3)
  1. DOCETAXEL ACCORD [Suspect]
     Active Substance: DOCETAXEL
     Indication: GASTRIC CANCER
     Dosage: 139.5 MG, UNK
     Route: 042
     Dates: start: 20140502, end: 20140502
  2. CISPLATIN MYLAN [Suspect]
     Active Substance: CISPLATIN
     Indication: GASTRIC CANCER
     Dosage: 139.5 MG, UNK
     Route: 042
     Dates: start: 20140502, end: 20140502
  3. FLUOROURACIL PFIZER [Suspect]
     Active Substance: FLUOROURACIL
     Indication: GASTRIC CANCER
     Dosage: 6975 MG, QD
     Route: 042
     Dates: start: 20140502, end: 20140502

REACTIONS (1)
  - Colitis [Unknown]

NARRATIVE: CASE EVENT DATE: 201405
